FAERS Safety Report 6097050-9 (Version None)
Quarter: 2009Q1

REPORT INFORMATION
  Report Type: 
  Country: None (occurrence: None)
  Receive Date: 20090227
  Receipt Date: 20090224
  Transmission Date: 20090719
  Serious: Yes (Death, Other)
  Sender: FDA-Public Use
  Company Number: PHHY2009MX04169

PATIENT
  Sex: Female

DRUGS (3)
  1. TEGRETOL [Suspect]
     Dosage: 1 TABLET DAILY
     Route: 048
     Dates: start: 20071207
  2. METFORMIN [Concomitant]
  3. GLIBENCLAMIDE [Concomitant]

REACTIONS (6)
  - ASTHENIA [None]
  - DIABETES MELLITUS [None]
  - HEADACHE [None]
  - LETHARGY [None]
  - LIVER DISORDER [None]
  - RESPIRATORY DISORDER [None]
